FAERS Safety Report 6430390-X (Version None)
Quarter: 2009Q4

REPORT INFORMATION
  Report Type: 
  Country: None (occurrence: None)
  Receive Date: 20091106
  Receipt Date: 20091026
  Transmission Date: 20100525
  Serious: Yes (Hospitalization)
  Sender: FDA-Public Use
  Company Number: JP-PFIZER INC-2009291805

PATIENT
  Age: 57 Year
  Sex: Male

DRUGS (3)
  1. BANAN [Suspect]
     Indication: BRONCHITIS
     Dosage: 200 MG/DAY
     Route: 048
     Dates: start: 20091001, end: 20091001
  2. CRAVIT [Suspect]
     Indication: BRONCHITIS
     Dosage: 300 MG/DAY
     Route: 048
     Dates: start: 20090901, end: 20090901
  3. FLOMOX [Concomitant]
     Dosage: UNK
     Route: 065
     Dates: start: 20091001

REACTIONS (1)
  - INTERSTITIAL LUNG DISEASE [None]
